FAERS Safety Report 11079507 (Version 1)
Quarter: 2015Q2

REPORT INFORMATION
  Report Type: Spontaneous
  Country: CA (occurrence: CA)
  Receive Date: 20150430
  Receipt Date: 20150430
  Transmission Date: 20150821
  Serious: Yes (Death, Other)
  Sender: FDA-Public Use
  Company Number: CA-ELI_LILLY_AND_COMPANY-CA201504009267

PATIENT
  Age: 61 Year
  Sex: Female

DRUGS (5)
  1. GEMZAR [Suspect]
     Active Substance: GEMCITABINE HYDROCHLORIDE
     Indication: DIFFUSE LARGE B-CELL LYMPHOMA
     Dosage: 1640 MG, CYCLICAL
     Route: 042
  2. CISPLATIN. [Interacting]
     Active Substance: CISPLATIN
     Indication: DIFFUSE LARGE B-CELL LYMPHOMA
     Dosage: UNK, UNKNOWN
     Route: 065
  3. DEXAMETHASONE. [Interacting]
     Active Substance: DEXAMETHASONE
     Dosage: 8 MG, UNKNOWN
     Route: 042
  4. DEXAMETHASONE. [Interacting]
     Active Substance: DEXAMETHASONE
     Indication: DIFFUSE LARGE B-CELL LYMPHOMA
     Dosage: 40 MG, EACH MORNING
     Route: 048
  5. RITUXIMAB [Interacting]
     Active Substance: RITUXIMAB
     Indication: DIFFUSE LARGE B-CELL LYMPHOMA
     Dosage: 100 MG, OTHER
     Route: 042

REACTIONS (3)
  - Malignant neoplasm progression [Fatal]
  - Arteriospasm coronary [Recovered/Resolved]
  - Drug interaction [Unknown]
